FAERS Safety Report 17024710 (Version 1)
Quarter: 2019Q4

REPORT INFORMATION
  Report Type: Spontaneous
  Country: US (occurrence: US)
  Receive Date: 20191113
  Receipt Date: 20191113
  Transmission Date: 20200122
  Serious: No
  Sender: FDA-Public Use
  Company Number: US-TEVA-2019-US-1134541

PATIENT
  Sex: Female

DRUGS (2)
  1. CLONAZEPAM. [Suspect]
     Active Substance: CLONAZEPAM
     Indication: MENTAL DISORDER
  2. CLONAZEPAM. [Suspect]
     Active Substance: CLONAZEPAM
     Indication: MALAISE

REACTIONS (3)
  - Expired product administered [Unknown]
  - Product dispensing error [Unknown]
  - Drug ineffective [Unknown]
